FAERS Safety Report 5834370-4 (Version None)
Quarter: 2008Q3

REPORT INFORMATION
  Report Type: 
  Country: None (occurrence: None)
  Receive Date: 20080805
  Receipt Date: 20080728
  Transmission Date: 20090109
  Serious: Yes (Other)
  Sender: FDA-Public Use
  Company Number: CN-SANOFI-SYNTHELABO-A01200809117

PATIENT

DRUGS (4)
  1. FLUOROURACIL [Concomitant]
     Dosage: UNK
     Route: 042
     Dates: start: 20060101, end: 20060101
  2. LEUCOVORIN CALCIUM [Concomitant]
     Dosage: UNK
     Route: 042
     Dates: start: 20060101, end: 20060101
  3. ELOXATIN [Suspect]
     Indication: CARCINOID TUMOUR OF THE GASTROINTESTINAL TRACT
     Dosage: Q2W
     Route: 042
     Dates: start: 20060101, end: 20060101
  4. XELODA [Concomitant]
     Dosage: UNK
     Dates: start: 20060101, end: 20060101

REACTIONS (2)
  - CARDIAC FAILURE [None]
  - HYPERSENSITIVITY [None]
